FAERS Safety Report 8813408 (Version 1)
Quarter: 2012Q4

REPORT INFORMATION
  Report Type: 
  Country: US (occurrence: US)
  Receive Date: 20120927
  Receipt Date: 20120927
  Transmission Date: 20130627
  Serious: No
  Sender: FDA-Public Use
  Company Number: US-AMGEN-USASP2012051341

PATIENT
  Age: 54 Year
  Sex: Female

DRUGS (9)
  1. PROLIA [Suspect]
     Indication: OSTEOPOROSIS POSTMENOPAUSAL
     Dosage: 60 mg, UNK
     Dates: start: 201010
  2. CLONAZEPAM [Concomitant]
     Indication: MIGRAINE
     Dosage: UNK UNK, qd
  3. VAGIFEM [Concomitant]
     Dosage: UNK UNK, per chemo regim
  4. CALCIUM [Concomitant]
  5. VITAMIN D /00107901/ [Concomitant]
  6. ACIDOPHILUS [Concomitant]
  7. MAXALT                             /01406501/ [Concomitant]
     Dosage: UNK UNK, prn
  8. MULTIVITAMIN                       /00097801/ [Concomitant]
  9. VITAMIN C                          /00008001/ [Concomitant]

REACTIONS (2)
  - Cystitis interstitial [Not Recovered/Not Resolved]
  - Human papilloma virus test positive [Not Recovered/Not Resolved]
